FAERS Safety Report 17700245 (Version 1)
Quarter: 2020Q2

REPORT INFORMATION
  Report Type: Spontaneous
  Country: FR (occurrence: FR)
  Receive Date: 20200423
  Receipt Date: 20200423
  Transmission Date: 20200714
  Serious: Yes (Death, Hospitalization, Other)
  Sender: FDA-Public Use
  Company Number: FR-BRISTOL-MYERS SQUIBB COMPANY-BMS-2020-033291

PATIENT
  Age: 87 Year
  Sex: Male

DRUGS (1)
  1. COUMADINE [Suspect]
     Active Substance: WARFARIN SODIUM
     Indication: ATRIAL FIBRILLATION
     Dosage: 0.75 DOSAGE FORM
     Route: 048

REACTIONS (2)
  - Cerebrovascular accident [Fatal]
  - Haemorrhage [Fatal]

NARRATIVE: CASE EVENT DATE: 20200123
